FAERS Safety Report 19264727 (Version 1)
Quarter: 2021Q2

REPORT INFORMATION
  Report Type: Spontaneous
  Country: US (occurrence: US)
  Receive Date: 20210517
  Receipt Date: 20210517
  Transmission Date: 20210717
  Serious: Yes (Hospitalization)
  Sender: FDA-Public Use
  Company Number: None

PATIENT
  Sex: Female

DRUGS (1)
  1. ENTECAVIR TAB [Suspect]
     Active Substance: ENTECAVIR
     Indication: CHRONIC HEPATITIS C
     Route: 048
     Dates: start: 20210402

REACTIONS (2)
  - Liver transplant [None]
  - Nausea [None]
